FAERS Safety Report 21395125 (Version 1)
Quarter: 2022Q3

REPORT INFORMATION
  Report Type: Report from Study
  Country: BR (occurrence: BR)
  Receive Date: 20220930
  Receipt Date: 20220930
  Transmission Date: 20221027
  Serious: Yes (Other)
  Sender: FDA-Public Use
  Company Number: BR-JNJFOC-20220155482

PATIENT
  Sex: Female

DRUGS (4)
  1. SIMPONI [Suspect]
     Active Substance: GOLIMUMAB
     Indication: Rheumatoid arthritis
     Route: 058
  2. SIMPONI [Suspect]
     Active Substance: GOLIMUMAB
     Route: 058
     Dates: start: 20210930
  3. DIPYRONE [Concomitant]
     Active Substance: DIPYRONE
     Indication: Pain
  4. LEFLUNOMIDE [Concomitant]
     Active Substance: LEFLUNOMIDE
     Indication: Pain

REACTIONS (5)
  - Chikungunya virus infection [Unknown]
  - Rheumatoid arthritis [Unknown]
  - Influenza [Unknown]
  - Abdominal pain upper [Unknown]
  - Product dose omission issue [Unknown]
